FAERS Safety Report 7742039-4 (Version None)
Quarter: 2011Q3

REPORT INFORMATION
  Report Type: 
  Country: None (occurrence: None)
  Receive Date: 20110912
  Receipt Date: 20110829
  Transmission Date: 20111222
  Serious: Yes (Other)
  Sender: FDA-Public Use
  Company Number: PHHY2011DE57872

PATIENT
  Sex: Male

DRUGS (3)
  1. GINKGO BILOBA [Suspect]
     Dosage: UNK UKN, UNK
     Route: 048
     Dates: start: 20110601
  2. VOLTAREN [Suspect]
     Indication: SURGERY
     Dosage: UNK UKN, UNK
     Route: 048
  3. RASILEZ [Suspect]
     Indication: HYPERTENSION
     Dosage: 1 DF, QD
     Route: 048
     Dates: start: 20090101

REACTIONS (3)
  - BLOOD PRESSURE DIASTOLIC DECREASED [None]
  - BLOOD PRESSURE SYSTOLIC INCREASED [None]
  - DYSGEUSIA [None]
